FAERS Safety Report 12347123 (Version 1)
Quarter: 2016Q2

REPORT INFORMATION
  Report Type: Spontaneous
  Country: NL (occurrence: NL)
  Receive Date: 20160509
  Receipt Date: 20160509
  Transmission Date: 20160815
  Serious: Yes (Other)
  Sender: FDA-Public Use
  Company Number: NL-ASTRAZENECA-2016SE48800

PATIENT
  Age: 21742 Day
  Sex: Male

DRUGS (8)
  1. CARBASALATE CALCIUM [Suspect]
     Active Substance: CARBASALATE
     Indication: CEREBROVASCULAR ACCIDENT
     Route: 048
     Dates: start: 20160303
  2. SIMVASTATIN. [Suspect]
     Active Substance: SIMVASTATIN
     Indication: PRODUCT USED FOR UNKNOWN INDICATION
     Route: 048
     Dates: start: 20160303
  3. HYDROCHLOORTHIAZIDE [Concomitant]
     Active Substance: HYDROCHLOROTHIAZIDE
     Route: 048
     Dates: start: 20150729
  4. BISOPROLOL [Suspect]
     Active Substance: BISOPROLOL
     Indication: CEREBROVASCULAR ACCIDENT
     Route: 048
     Dates: start: 20160404
  5. METFORMIN [Concomitant]
     Active Substance: METFORMIN HYDROCHLORIDE
     Route: 048
     Dates: start: 20141203
  6. RAMIPRIL. [Concomitant]
     Active Substance: RAMIPRIL
     Route: 048
     Dates: start: 20160308
  7. METOPROLOL SUCCINATE. [Suspect]
     Active Substance: METOPROLOL SUCCINATE
     Indication: CEREBROVASCULAR ACCIDENT
     Route: 048
     Dates: start: 20160303
  8. DESLORATADINE. [Concomitant]
     Active Substance: DESLORATADINE

REACTIONS (1)
  - Dermatitis exfoliative [Recovered/Resolved]

NARRATIVE: CASE EVENT DATE: 20160406
